FAERS Safety Report 9399755 (Version 1)
Quarter: 2013Q3

REPORT INFORMATION
  Report Type: Spontaneous
  Country: US (occurrence: None)
  Receive Date: 20130710
  Receipt Date: 20130710
  Transmission Date: 20140515
  Serious: Yes (Hospitalization)
  Sender: FDA-Public Use
  Company Number: FK201302423

PATIENT
  Age: 16 Year
  Sex: Male

DRUGS (1)
  1. FLUDARABINE [Suspect]
     Indication: MYELODYSPLASTIC SYNDROME
     Dosage: 40 MG.M2, 1D

REACTIONS (5)
  - Leukoencephalopathy [None]
  - Pain in extremity [None]
  - Paraesthesia [None]
  - No therapeutic response [None]
  - Hallucination [None]
